FAERS Safety Report 18200976 (Version 1)
Quarter: 2020Q3

REPORT INFORMATION
  Report Type: Other
  Country: FR (occurrence: FR)
  Receive Date: 20200827
  Receipt Date: 20200827
  Transmission Date: 20201103
  Serious: Yes (Other)
  Sender: FDA-Public Use
  Company Number: FR-CADILA HEALTHCARE LIMITED-FR-ZYDUS-040700

PATIENT

DRUGS (8)
  1. BACTRIM [Suspect]
     Active Substance: SULFAMETHOXAZOLE\TRIMETHOPRIM
     Indication: ANTI-INFECTIVE THERAPY
     Dosage: 3 DOSAGE FORM,(INTERVAL :1 WEEKS)
     Route: 048
  2. IBRUTINIB [Suspect]
     Active Substance: IBRUTINIB
     Indication: CHRONIC MYELOID LEUKAEMIA
     Dosage: 3 DOSAGE FORM,(INTERVAL :1 DAYS)
     Route: 048
     Dates: start: 201412
  3. ALLOPURINOL. [Suspect]
     Active Substance: ALLOPURINOL
     Indication: GOUT
     Dosage: 100 MILLIGRAM,(INTERVAL :1 DAYS)
     Route: 048
  4. LEDERFOLINE [Suspect]
     Active Substance: LEUCOVORIN CALCIUM
     Indication: VITAMIN SUPPLEMENTATION
     Dosage: 1 DOSAGE FORM,(INTERVAL :1 WEEKS)
     Route: 048
  5. TAMSULOSIN [Suspect]
     Active Substance: TAMSULOSIN
     Indication: PROSTATIC ADENOMA
     Dosage: .4 MILLIGRAM,(INTERVAL :1 DAYS)
     Route: 048
  6. PERMIXON [Suspect]
     Active Substance: HERBALS\SAW PALMETTO
     Indication: PROSTATIC ADENOMA
     Dosage: 1 DOSAGE FORM,(INTERVAL :1 DAYS)
     Route: 048
  7. ZELITREX [Suspect]
     Active Substance: VALACYCLOVIR HYDROCHLORIDE
     Indication: PROPHYLAXIS
     Dosage: 1 DOSAGE FORM,(INTERVAL :1 DAYS)
     Route: 048
  8. DOMPERIDONE [Suspect]
     Active Substance: DOMPERIDONE
     Indication: NAUSEA
     Dosage: 200 MILLIGRAM,(INTERVAL :1 DAYS)
     Route: 048

REACTIONS (1)
  - Atrial fibrillation [Not Recovered/Not Resolved]

NARRATIVE: CASE EVENT DATE: 20190814
